FAERS Safety Report 8831374 (Version 2)
Quarter: 2012Q4

REPORT INFORMATION
  Report Type: 
  Country: US (occurrence: US)
  Receive Date: 20121009
  Receipt Date: 20121019
  Transmission Date: 20130627
  Serious: Yes (Other)
  Sender: FDA-Public Use
  Company Number: US-ROXANE LABORATORIES, INC.-2012-RO-01963RO

PATIENT
  Age: 59 Year
  Sex: Female

DRUGS (1)
  1. PREDNISONE [Suspect]
     Indication: OPTIC NEURITIS
     Route: 048
     Dates: start: 2007, end: 2007

REACTIONS (1)
  - Substance-induced psychotic disorder [Recovered/Resolved]
